FAERS Safety Report 8787561 (Version 1)
Quarter: 2012Q4

REPORT INFORMATION
  Report Type: 
  Country: US (occurrence: US)
  Receive Date: 20120914
  Receipt Date: 20120914
  Transmission Date: 20130627
  Serious: Yes (Other)
  Sender: FDA-Public Use
  Company Number: US-VERTEX PHARMACEUTICAL INC.-AE-2012-009683

PATIENT

DRUGS (15)
  1. INCIVEK [Suspect]
     Indication: HEPATITIS C
     Route: 048
     Dates: start: 20120521
  2. PEGASYS [Concomitant]
     Indication: HEPATITIS C
     Route: 058
     Dates: start: 20120521
  3. RIBAVIRIN [Concomitant]
     Indication: HEPATITIS C
     Route: 048
     Dates: start: 20120521
  4. COZAAR [Concomitant]
     Indication: HYPERTENSION
     Route: 048
  5. ADVAIR INHALER [Concomitant]
     Indication: ASTHMA
  6. SPIRIVA INHALER [Concomitant]
     Indication: ASTHMA
  7. SINGULAIRE [Concomitant]
     Indication: ASTHMA
  8. LANTUS INSULIN [Concomitant]
     Indication: DIABETES MELLITUS
  9. HUMALOG INSULIN [Concomitant]
     Indication: DIABETES MELLITUS
  10. CARVEDILOL [Concomitant]
     Indication: HYPERTENSION
     Route: 048
  11. ALLOPURINOL [Concomitant]
     Indication: GOUT
     Route: 048
  12. NEXIUM [Concomitant]
     Indication: GASTROOESOPHAGEAL REFLUX DISEASE
     Route: 048
  13. FEXOFENADINE [Concomitant]
     Indication: HYPERSENSITIVITY
     Route: 048
  14. VITAMIN D [Concomitant]
     Route: 048
  15. LEVOTHYROXINE [Concomitant]
     Indication: HYPOTHYROIDISM
     Route: 048

REACTIONS (3)
  - Anaemia [Not Recovered/Not Resolved]
  - Parosmia [Not Recovered/Not Resolved]
  - Dysgeusia [Not Recovered/Not Resolved]
